FAERS Safety Report 21649608 (Version 1)
Quarter: 2022Q4

REPORT INFORMATION
  Report Type: Spontaneous
  Country: US (occurrence: US)
  Receive Date: 20221128
  Receipt Date: 20221128
  Transmission Date: 20230112
  Serious: Yes (Other)
  Sender: FDA-Public Use
  Company Number: US-CIPLA (EU) LIMITED-2022US06870

PATIENT
  Sex: Female

DRUGS (1)
  1. ALBUTEROL [Suspect]
     Active Substance: ALBUTEROL
     Indication: Chronic obstructive pulmonary disease
     Dosage: 180 MICROGRAM (2 PUFFS), PRN (EVERYDAY AS NEEDED)
     Dates: end: 202211

REACTIONS (3)
  - Pulmonary capillary haemangiomatosis [Not Recovered/Not Resolved]
  - Dyspnoea [Unknown]
  - Heart rate increased [Not Recovered/Not Resolved]
